FAERS Safety Report 12238254 (Version 1)
Quarter: 2016Q2

REPORT INFORMATION
  Report Type: Spontaneous
  Country: US (occurrence: None)
  Receive Date: 20160404
  Receipt Date: 20160404
  Transmission Date: 20160815
  Serious: Yes (Death)
  Sender: FDA-Public Use
  Company Number: None

PATIENT
  Age: 60 Year
  Sex: Female

DRUGS (8)
  1. HUMALOG [Suspect]
     Active Substance: INSULIN LISPRO
     Indication: DIABETES MELLITUS
     Dosage: VIA INSULIN PUMP
     Route: 058
     Dates: start: 20150317
  2. LIDODERM [Suspect]
     Active Substance: LIDOCAINE
     Indication: CYSTIC FIBROSIS
     Route: 062
     Dates: start: 20150414
  3. CREON [Suspect]
     Active Substance: PANCRELIPASE AMYLASE\PANCRELIPASE LIPASE\PANCRELIPASE PROTEASE
     Indication: CYSTIC FIBROSIS
     Dates: start: 20150506
  4. NASONEX [Suspect]
     Active Substance: MOMETASONE FUROATE
     Indication: CYSTIC FIBROSIS
     Route: 045
     Dates: start: 20150317
  5. ATROVENT HFA [Suspect]
     Active Substance: IPRATROPIUM BROMIDE
     Indication: CYSTIC FIBROSIS
     Route: 055
     Dates: start: 20150210
  6. PROVENTIL HFA [Suspect]
     Active Substance: ALBUTEROL SULFATE
     Indication: CYSTIC FIBROSIS
     Dosage: RESPIRATORY INHALATION
     Route: 055
     Dates: start: 20150924
  7. MEPHYTON [Suspect]
     Active Substance: PHYTONADIONE
     Indication: CYSTIC FIBROSIS
     Dosage: 4 TIMES WEEKLY ORAL
     Route: 048
     Dates: start: 20150210
  8. PULMOZYME [Suspect]
     Active Substance: DORNASE ALFA
     Indication: CYSTIC FIBROSIS
     Dosage: RESPIRATORY INHALATION
     Route: 055
     Dates: start: 20150210

REACTIONS (1)
  - Death [None]
